FAERS Safety Report 12076591 (Version 2)
Quarter: 2016Q1

REPORT INFORMATION
  Report Type: Other
  Country: US (occurrence: US)
  Receive Date: 20160215
  Receipt Date: 20160225
  Transmission Date: 20160526
  Serious: Yes (Other)
  Sender: FDA-Public Use
  Company Number: US-CIPLA LTD.-2016US01114

PATIENT

DRUGS (2)
  1. MIGRAVENT [Concomitant]
     Active Substance: DIETARY SUPPLEMENT
     Indication: MIGRAINE
     Dosage: UNK
     Route: 065
  2. MELOXICAM. [Suspect]
     Active Substance: MELOXICAM
     Indication: NEURALGIA
     Dosage: 15 MG, QD AT NIGHT
     Route: 048
     Dates: start: 20151121

REACTIONS (4)
  - Musculoskeletal stiffness [Recovered/Resolved]
  - Drug ineffective [Unknown]
  - Breakthrough pain [Recovered/Resolved]
  - Peripheral swelling [Recovered/Resolved]

NARRATIVE: CASE EVENT DATE: 201511
